FAERS Safety Report 5357442-X (Version None)
Quarter: 2007Q2

REPORT INFORMATION
  Report Type: 
  Country: None (occurrence: None)
  Receive Date: 20070530
  Receipt Date: 20061004
  Transmission Date: 20071010
  Serious: Yes (Other)
  Sender: FDA-Public Use
  Company Number: US_0508120883

PATIENT
  Age: 54 Year
  Sex: Male
  Weight: 117.9 kg

DRUGS (7)
  1. ZYPREXA [Suspect]
     Indication: SCHIZOPHRENIA
     Dosage: 5 MG, 3/D, UNK
     Dates: start: 19971009, end: 19971216
  2. PREDNISONE TAB [Concomitant]
  3. WELLBUTRIN - SLOW RELEASE (BUPROPION HYDROCHLORIDE) TABLET [Concomitant]
  4. AMBIEN [Concomitant]
  5. ARIPIPRAZOLE (ARIPIPRAZOLE) TABLET [Concomitant]
  6. SEROQUEL [Concomitant]
  7. ALBUTEROL [Concomitant]

REACTIONS (5)
  - BLOOD GLUCOSE INCREASED [None]
  - DIABETES MELLITUS NON-INSULIN-DEPENDENT [None]
  - HYPERGLYCAEMIA [None]
  - VISUAL DISTURBANCE [None]
  - WEIGHT INCREASED [None]
